FAERS Safety Report 15324886 (Version 8)
Quarter: 2019Q1

REPORT INFORMATION
  Report Type: Spontaneous
  Country: CA (occurrence: CA)
  Receive Date: 20180828
  Receipt Date: 20190323
  Transmission Date: 20190417
  Serious: Yes (Other)
  Sender: FDA-Public Use
  Company Number: CA-CELLTRION INC.-2018CA020803

PATIENT

DRUGS (20)
  1. INFLECTRA [Suspect]
     Active Substance: INFLIXIMAB-DYYB
     Dosage: 700 MG, MAINTENANCE EVERY 4 WEEKS
     Route: 042
     Dates: start: 20180719
  2. MEZAVANT [Concomitant]
     Active Substance: MESALAMINE
     Dosage: 4.8 UNK, DAILY
     Route: 048
     Dates: start: 2014
  3. DIPHENHYDRAMINE. [Concomitant]
     Active Substance: DIPHENHYDRAMINE
     Dosage: 50 MG
     Dates: start: 20190110
  4. INFLECTRA [Suspect]
     Active Substance: INFLIXIMAB-DYYB
     Dosage: 700 MG, MAINTENANCE EVERY 4 WEEKS
     Route: 042
     Dates: start: 20181115
  5. INFLECTRA [Suspect]
     Active Substance: INFLIXIMAB-DYYB
     Dosage: 700 MG MAINTENANCE EVERY 4 WEEKS
     Route: 042
     Dates: start: 20190110
  6. INFLECTRA [Suspect]
     Active Substance: INFLIXIMAB-DYYB
     Dosage: 700 MG, MAINTENANCE EVERY 4 WEEKS
     Route: 042
     Dates: start: 20181015
  7. MEZAVANT [Concomitant]
     Active Substance: MESALAMINE
     Dosage: 3.6 MG
     Route: 048
     Dates: start: 2014
  8. DIPHENHYDRAMINE. [Concomitant]
     Active Substance: DIPHENHYDRAMINE
     Dosage: 50 MG
     Route: 048
     Dates: start: 20181115
  9. INFLECTRA [Suspect]
     Active Substance: INFLIXIMAB-DYYB
     Dosage: 700 MG, MAINTENANCE EVERY 4 WEEKS
     Route: 042
     Dates: start: 20180816
  10. INFLECTRA [Suspect]
     Active Substance: INFLIXIMAB-DYYB
     Dosage: 700 MG, MAINTENANCE EVERY 4 WEEKS
     Route: 042
     Dates: start: 20180919
  11. INFLECTRA [Suspect]
     Active Substance: INFLIXIMAB-DYYB
     Dosage: 700 MG MAINTENANCE EVERY 4 WEEKS
     Route: 042
     Dates: start: 20190214
  12. ZOLOFT [Concomitant]
     Active Substance: SERTRALINE HYDROCHLORIDE
     Dosage: 75 MG, DAILY
     Route: 048
  13. MEZAVANT [Concomitant]
     Active Substance: MESALAMINE
     Dosage: 2.4 G
     Route: 048
     Dates: start: 2014
  14. ACETAMINOPHEN. [Concomitant]
     Active Substance: ACETAMINOPHEN
     Indication: PREMEDICATION
     Dosage: 650 MG
     Dates: start: 20181115
  15. ATIVAN [Concomitant]
     Active Substance: LORAZEPAM
     Dosage: UNK, PRN
  16. INFLECTRA [Suspect]
     Active Substance: INFLIXIMAB-DYYB
     Indication: COLITIS ULCERATIVE
     Dosage: 700 MG ( 10MG/KG), WEEK 0, 2 AND WEEK 6 AND Q 8 WEEKS THEREAFTER
     Route: 042
     Dates: start: 20180530, end: 20180620
  17. INFLECTRA [Suspect]
     Active Substance: INFLIXIMAB-DYYB
     Dosage: 700 MG, MAINTENANCE EVERY 4 WEEKS
     Route: 042
     Dates: start: 20181211
  18. ACETAMINOPHEN. [Concomitant]
     Active Substance: ACETAMINOPHEN
     Dosage: 650 MG
     Dates: start: 20190110
  19. PREDNISONE. [Concomitant]
     Active Substance: PREDNISONE
     Dosage: 40 MG AND TAPERING DOSE (16 WEEK TAPER)
  20. SOLU-MEDROL [Concomitant]
     Active Substance: METHYLPREDNISOLONE SODIUM SUCCINATE
     Route: 042

REACTIONS (8)
  - Drug effect incomplete [Recovering/Resolving]
  - Product use issue [Unknown]
  - Oral disorder [Recovered/Resolved]
  - Blood pressure fluctuation [Unknown]
  - Fatigue [Unknown]
  - Animal bite [Recovering/Resolving]
  - Condition aggravated [Recovered/Resolved]
  - Dizziness [Unknown]

NARRATIVE: CASE EVENT DATE: 20180530
